FAERS Safety Report 12267641 (Version 2)
Quarter: 2016Q3

REPORT INFORMATION
  Report Type: Spontaneous
  Country: US (occurrence: US)
  Receive Date: 20160414
  Receipt Date: 20160714
  Transmission Date: 20161109
  Serious: No
  Sender: FDA-Public Use
  Company Number: US-GALDERMA-US16001319

PATIENT
  Age: 34 Year
  Sex: Female

DRUGS (11)
  1. SOOLANTRA [Suspect]
     Active Substance: IVERMECTIN
     Indication: ROSACEA
     Dosage: 1%
     Route: 061
     Dates: start: 20151231, end: 20160103
  2. MARY KAY TIME WISE MOISTURIZER [Concomitant]
     Route: 061
  3. MILD MOISTURIZER [Concomitant]
     Route: 061
     Dates: start: 20151230
  4. KEFLEX [Concomitant]
     Active Substance: CEPHALEXIN
     Dosage: 1000 MG
     Route: 048
     Dates: start: 20151230
  5. ACYCLOVIR. [Concomitant]
     Active Substance: ACYCLOVIR
     Indication: GENITAL HERPES
     Route: 048
  6. MULTIVITAMIN [Concomitant]
     Active Substance: VITAMINS
     Route: 048
  7. MILD CLEANSER [Concomitant]
     Route: 061
     Dates: start: 20151230
  8. SULFA AND DESONIDE FORMULA [Concomitant]
     Route: 061
  9. SOOLANTRA [Suspect]
     Active Substance: IVERMECTIN
     Indication: SEBORRHOEIC DERMATITIS
  10. MARY KAY TIME WISE CLEANSER [Concomitant]
     Indication: THERAPEUTIC SKIN CARE TOPICAL
     Route: 061
  11. DIFLUCAN [Concomitant]
     Active Substance: FLUCONAZOLE
     Dosage: 150 MG
     Route: 048
     Dates: start: 20151230

REACTIONS (4)
  - Erythema [Recovered/Resolved]
  - Rosacea [Recovered/Resolved]
  - Pain of skin [Recovered/Resolved]
  - Skin irritation [Recovered/Resolved]

NARRATIVE: CASE EVENT DATE: 20151230
